FAERS Safety Report 12527386 (Version 3)
Quarter: 2016Q3

REPORT INFORMATION
  Report Type: Spontaneous
  Country: GB (occurrence: GB)
  Receive Date: 20160705
  Receipt Date: 20160801
  Transmission Date: 20161109
  Serious: Yes (Other)
  Sender: FDA-Public Use
  Company Number: GB-PFIZER INC-2016193346

PATIENT
  Age: 74 Year
  Sex: Male
  Weight: 147.2 kg

DRUGS (17)
  1. CARDURA XL [Suspect]
     Active Substance: DOXAZOSIN MESYLATE
     Indication: BLOOD PRESSURE MANAGEMENT
     Dosage: 4 MG, 1X/DAY
     Dates: start: 20031023
  2. CARDURA XL [Suspect]
     Active Substance: DOXAZOSIN MESYLATE
     Dosage: 16 MG, ONCE DAILY (2 X 8 MG TABLETS)
     Dates: start: 200604, end: 20160318
  3. GLUCOPHAGE [Concomitant]
     Active Substance: METFORMIN HYDROCHLORIDE
     Indication: TYPE 2 DIABETES MELLITUS
     Dosage: 500 MG, 4X/DAY (TAKEN 2 TWICE A DAY WITH FOOD)
     Dates: start: 19980828
  4. BUMETANIDE. [Concomitant]
     Active Substance: BUMETANIDE
     Indication: CARDIAC FAILURE
  5. CARDURA XL [Suspect]
     Active Substance: DOXAZOSIN MESYLATE
     Dosage: 8 MG, 1X/DAY (2 X 4MG )
     Dates: start: 20040115
  6. CARDURA XL [Suspect]
     Active Substance: DOXAZOSIN MESYLATE
     Dosage: 12 MG, ONCE DAILY ( ISSUED AS 1 X 8 MG AND 1 C 4 MG TABLETS)
     Dates: start: 20060324
  7. BUMETANIDE. [Concomitant]
     Active Substance: BUMETANIDE
     Indication: CHRONIC KIDNEY DISEASE
     Dosage: 1 MG, 3X/DAY (TAKE 3 EACH LUNCHTIME)
     Dates: start: 19970703
  8. ZERODOUBLE [Concomitant]
     Indication: ECZEMA
     Dosage: UNK (TO BE APPLIED TO THE AFFECTED PART REGULARLY)
  9. CANDESARTAN [Concomitant]
     Active Substance: CANDESARTAN
     Indication: HYPERTENSION
  10. MOXONIDINE [Concomitant]
     Active Substance: MOXONIDINE
     Indication: HYPERTENSION
     Dosage: 200 UG, 1X/DAY
     Dates: start: 20081119
  11. ALPHACALCIDOL [Concomitant]
     Active Substance: ALFACALCIDOL
     Indication: CHRONIC KIDNEY DISEASE
     Dosage: 250 NG, DAILY
     Dates: start: 20100914
  12. CANDESARTAN [Concomitant]
     Active Substance: CANDESARTAN
     Indication: CARDIAC FAILURE
     Dosage: 32 MG, DAILY
     Dates: start: 20141011
  13. SIMVASTATIN. [Concomitant]
     Active Substance: SIMVASTATIN
     Indication: DIABETES MELLITUS
     Dosage: 20 MG, 1X/DAY (TAKEN AT NIGHT)
     Dates: start: 20070704
  14. WARFARIN [Concomitant]
     Active Substance: WARFARIN
     Indication: ATRIAL FIBRILLATION
     Dosage: 1 MG, 3MG, 5MG TABLETS TO BE TAKEN AS DIRECTED
     Dates: start: 20050523
  15. BISOPROLOL [Concomitant]
     Active Substance: BISOPROLOL
     Indication: ATRIAL FIBRILLATION
     Dosage: 5 MG, 2X/DAY
     Dates: start: 20100511
  16. BISOPROLOL [Concomitant]
     Active Substance: BISOPROLOL
     Indication: HYPERTENSION
  17. SIMVASTATIN. [Concomitant]
     Active Substance: SIMVASTATIN
     Indication: HYPERTENSION

REACTIONS (24)
  - Peripheral vascular disorder [Recovering/Resolving]
  - Skin discolouration [Recovering/Resolving]
  - Myalgia [Recovering/Resolving]
  - Pruritus [Recovering/Resolving]
  - Chronic kidney disease [Unknown]
  - Left ventricular failure [Unknown]
  - Mobility decreased [Recovering/Resolving]
  - Balance disorder [Recovering/Resolving]
  - Pain in extremity [Recovering/Resolving]
  - Skin irritation [Recovering/Resolving]
  - Arthralgia [Recovering/Resolving]
  - Asthenia [Recovering/Resolving]
  - Depression [Recovering/Resolving]
  - Atrial fibrillation [Unknown]
  - Irritability [Recovering/Resolving]
  - Prescribed overdose [Recovering/Resolving]
  - Mental impairment [Recovering/Resolving]
  - Dizziness [Recovering/Resolving]
  - Dyspnoea [Recovering/Resolving]
  - Cerebral disorder [Recovering/Resolving]
  - Muscle fatigue [Recovering/Resolving]
  - Mood swings [Recovering/Resolving]
  - Loss of libido [Recovering/Resolving]
  - Lacrimation increased [Recovering/Resolving]

NARRATIVE: CASE EVENT DATE: 200604
